FAERS Safety Report 4747524-5 (Version None)
Quarter: 2005Q3

REPORT INFORMATION
  Report Type: 
  Country: None (occurrence: None)
  Receive Date: 20050817
  Receipt Date: 20050817
  Transmission Date: 20060218
  Serious: Yes (Disabling)
  Sender: FDA-Public Use
  Company Number: None

PATIENT

DRUGS (1)
  1. GENTAMICIN [Suspect]

REACTIONS (3)
  - BALANCE DISORDER [None]
  - DEAFNESS [None]
  - OTOTOXICITY [None]
